FAERS Safety Report 16211522 (Version 1)
Quarter: 2019Q2

REPORT INFORMATION
  Report Type: Spontaneous
  Country: US (occurrence: US)
  Receive Date: 20190418
  Receipt Date: 20190418
  Transmission Date: 20190711
  Serious: Yes (Other)
  Sender: FDA-Public Use
  Company Number: US-ELI_LILLY_AND_COMPANY-US201904007714

PATIENT
  Age: 49 Year

DRUGS (1)
  1. TRULICITY [Suspect]
     Active Substance: DULAGLUTIDE
     Indication: PRODUCT USED FOR UNKNOWN INDICATION
     Dosage: 0.75 MG, UNKNOWN
     Route: 065
     Dates: end: 201903

REACTIONS (12)
  - Blood pressure increased [Unknown]
  - Hypophagia [Recovered/Resolved]
  - Fatigue [Unknown]
  - Urine output decreased [Unknown]
  - Mobility decreased [Unknown]
  - Gait inability [Unknown]
  - Vertigo [Recovered/Resolved]
  - Drug intolerance [Unknown]
  - Nausea [Unknown]
  - Vomiting [Unknown]
  - Gastric infection [Unknown]
  - Fluid intake reduced [Recovered/Resolved]
